FAERS Safety Report 5963174-7 (Version None)
Quarter: 2008Q4

REPORT INFORMATION
  Report Type: 
  Country: None (occurrence: None)
  Receive Date: 20081120
  Receipt Date: 20081120
  Transmission Date: 20090506
  Serious: Yes (Hospitalization)
  Sender: FDA-Public Use
  Company Number: None

PATIENT
  Sex: Female
  Weight: 82.5547 kg

DRUGS (1)
  1. SOLU-MEDROL [Suspect]
     Indication: ANGIOEDEMA
     Dosage: 125 MG ONCE IV BOLUS  (DURATION: SINGLE DOSE)
     Route: 040

REACTIONS (4)
  - CHEST DISCOMFORT [None]
  - DYSPNOEA [None]
  - FEELING HOT [None]
  - WHEEZING [None]
